FAERS Safety Report 6302645-0 (Version None)
Quarter: 2009Q3

REPORT INFORMATION
  Report Type: 
  Country: None (occurrence: None)
  Receive Date: 20090810
  Receipt Date: 20090729
  Transmission Date: 20100115
  Serious: Yes (Other)
  Sender: FDA-Public Use
  Company Number: IE-NOVOPROD-289209

PATIENT
  Age: 26 Year
  Sex: Female
  Weight: 59 kg

DRUGS (2)
  1. LEVEMIR [Suspect]
     Indication: GESTATIONAL DIABETES
     Dosage: 56 U, QD
     Route: 058
     Dates: start: 20090612, end: 20090629
  2. HUMALOG [Concomitant]
     Dosage: 17 IU, QD
     Route: 058
     Dates: start: 20090529

REACTIONS (7)
  - DRUG EXPOSURE DURING PREGNANCY [None]
  - DRUG HYPERSENSITIVITY [None]
  - GAIT DISTURBANCE [None]
  - INJECTION SITE ERYTHEMA [None]
  - PAIN [None]
  - PAIN IN EXTREMITY [None]
  - PRURITUS [None]
